FAERS Safety Report 5397665-7 (Version None)
Quarter: 2007Q3

REPORT INFORMATION
  Report Type: 
  Country: None (occurrence: None)
  Receive Date: 20070723
  Receipt Date: 20070723
  Transmission Date: 20080115
  Serious: No
  Sender: FDA-Public Use
  Company Number: None

PATIENT
  Age: 81 Year
  Sex: Male
  Weight: 77.1115 kg

DRUGS (1)
  1. BIAXIN [Suspect]
     Indication: PNEUMONIA
     Dosage: 500MG 2 P.O. Q.DAY
     Route: 048
     Dates: start: 20070225, end: 20070226

REACTIONS (10)
  - CONDITION AGGRAVATED [None]
  - DEAFNESS [None]
  - FALL [None]
  - GAIT DISTURBANCE [None]
  - INJURY [None]
  - NEUROPATHY PERIPHERAL [None]
  - PARAESTHESIA [None]
  - RIB FRACTURE [None]
  - SPINAL DISORDER [None]
  - TINNITUS [None]
